FAERS Safety Report 11322307 (Version 1)
Quarter: 2015Q3

REPORT INFORMATION
  Report Type: Spontaneous
  Country: US (occurrence: None)
  Receive Date: 20150626
  Receipt Date: 20150626
  Transmission Date: 20151125
  Serious: No
  Sender: FDA-Public Use
  Company Number: 1000076882

PATIENT
  Age: 81 Year
  Sex: Female

DRUGS (1)
  1. LINZESS [Suspect]
     Active Substance: LINACLOTIDE
     Indication: CONSTIPATION
     Dates: start: 201405

REACTIONS (3)
  - Off label use [None]
  - Diarrhoea [None]
  - Proctalgia [None]

NARRATIVE: CASE EVENT DATE: 201405
